FAERS Safety Report 7788891-8 (Version None)
Quarter: 2011Q3

REPORT INFORMATION
  Report Type: 
  Country: None (occurrence: None)
  Receive Date: 20110928
  Receipt Date: 20110915
  Transmission Date: 20111222
  Serious: Yes (Hospitalization)
  Sender: FDA-Public Use
  Company Number: JP-2011-11068

PATIENT
  Age: 70 Year
  Sex: Male

DRUGS (1)
  1. PLETAL [Suspect]
     Indication: ANGINA UNSTABLE
     Dosage: ORAL
     Route: 048
     Dates: start: 20090401

REACTIONS (7)
  - ILEAL ULCER [None]
  - RENAL IMPAIRMENT [None]
  - ANAEMIA [None]
  - EXTRAVASATION [None]
  - ULCER HAEMORRHAGE [None]
  - HAEMATOCHEZIA [None]
  - HYPOPROTEINAEMIA [None]
